FAERS Safety Report 18591205 (Version 3)
Quarter: 2021Q1

REPORT INFORMATION
  Report Type: Spontaneous
  Country: SA (occurrence: SA)
  Receive Date: 20201208
  Receipt Date: 20210202
  Transmission Date: 20210419
  Serious: Yes (Other)
  Sender: FDA-Public Use
  Company Number: SA-PFIZER INC-2020480399

PATIENT
  Age: 27 Year
  Sex: Male

DRUGS (9)
  1. CLONAZEPAM. [Suspect]
     Active Substance: CLONAZEPAM
     Indication: GENERALISED ANXIETY DISORDER
  2. XANAX [Suspect]
     Active Substance: ALPRAZOLAM
     Dosage: 3 MG
  3. PHENYTOIN. [Concomitant]
     Active Substance: PHENYTOIN
  4. DIAZEPAM. [Concomitant]
     Active Substance: DIAZEPAM
  5. CLONAZEPAM. [Suspect]
     Active Substance: CLONAZEPAM
     Indication: DEPRESSION
  6. XANAX [Suspect]
     Active Substance: ALPRAZOLAM
     Indication: DEPRESSION
     Dosage: UNK
     Dates: start: 2009
  7. XANAX [Suspect]
     Active Substance: ALPRAZOLAM
     Indication: GENERALISED ANXIETY DISORDER
     Dosage: 0.5 MG, 4X/DAY (2MG 1/2TAB QID)
  8. XANAX [Suspect]
     Active Substance: ALPRAZOLAM
     Dosage: 4 MG, DAILY
     Dates: start: 2016
  9. QUETIAPINE. [Concomitant]
     Active Substance: QUETIAPINE

REACTIONS (5)
  - Suicidal ideation [Unknown]
  - Limb injury [Unknown]
  - Product availability issue [Unknown]
  - Thinking abnormal [Unknown]
  - Therapy interrupted [Unknown]
